FAERS Safety Report 25079601 (Version 2)
Quarter: 2025Q2

REPORT INFORMATION
  Report Type: Spontaneous
  Country: CA (occurrence: CA)
  Receive Date: 20250314
  Receipt Date: 20250402
  Transmission Date: 20250717
  Serious: Yes (Other)
  Sender: AMERICAN REGENT
  Company Number: CA-AMERICAN REGENT INC-2025001065

PATIENT
  Age: 36 Year
  Sex: Female

DRUGS (1)
  1. VENOFER [Suspect]
     Active Substance: IRON SUCROSE
     Indication: Product used for unknown indication
     Dates: start: 20241015

REACTIONS (10)
  - Unresponsive to stimuli [Recovered/Resolved]
  - Tonic clonic movements [Recovered/Resolved]
  - Resuscitation [Recovered/Resolved]
  - Premature rupture of membranes [Unknown]
  - Premature baby [Unknown]
  - Influenza like illness [Unknown]
  - Maternal exposure during pregnancy [Unknown]
  - Syncope [Unknown]
  - Blood pressure decreased [Unknown]
  - Hypersensitivity [Unknown]

NARRATIVE: CASE EVENT DATE: 20240101
